FAERS Safety Report 5942054-7 (Version None)
Quarter: 2008Q4

REPORT INFORMATION
  Report Type: 
  Country: None (occurrence: None)
  Receive Date: 20081105
  Receipt Date: 20081031
  Transmission Date: 20090506
  Serious: Yes (Death, Hospitalization)
  Sender: FDA-Public Use
  Company Number: A0749487A

PATIENT
  Age: 61 Year
  Sex: Female

DRUGS (2)
  1. TYKERB [Suspect]
     Route: 048
  2. XELODA [Suspect]

REACTIONS (2)
  - BREAST CANCER METASTATIC [None]
  - DIARRHOEA [None]
